FAERS Safety Report 4867298-7 (Version None)
Quarter: 2005Q4

REPORT INFORMATION
  Report Type: 
  Country: None (occurrence: None)
  Receive Date: 20051227
  Receipt Date: 20051227
  Transmission Date: 20060501
  Serious: Yes (Death)
  Sender: FDA-Public Use
  Company Number: None

PATIENT
  Age: 90 Year
  Sex: Male
  Weight: 77 kg

DRUGS (2)
  1. WARFARIN  5 MG [Suspect]
     Indication: ATRIAL FIBRILLATION
     Dosage: 5 MG DAILY PO   MANY YEARS
     Route: 048
  2. ASPIRIN [Suspect]
     Indication: ATRIAL FIBRILLATION
     Dosage: 81 MG DAILY PO    MANY YEARS
     Route: 048

REACTIONS (1)
  - CEREBRAL HAEMORRHAGE [None]
